FAERS Safety Report 11183480 (Version 2)
Quarter: 2021Q4

REPORT INFORMATION
  Report Type: Spontaneous
  Country: GB (occurrence: GB)
  Receive Date: 20150612
  Receipt Date: 20211029
  Transmission Date: 20220303
  Serious: Yes (Disabling)
  Sender: FDA-Public Use
  Company Number: GB-DRREDDYS-GER/UKI/10/0013956

PATIENT
  Age: 49 Year
  Sex: Female
  Weight: 73 kg

DRUGS (8)
  1. FLUOXETINE [Suspect]
     Active Substance: FLUOXETINE HYDROCHLORIDE
     Indication: Depression
     Route: 048
     Dates: start: 2000
  2. ALLI [Suspect]
     Active Substance: ORLISTAT
     Indication: Obesity
     Route: 048
     Dates: start: 200903, end: 200906
  3. PREMPAK [Suspect]
     Active Substance: ESTROGENS, CONJUGATED\NORGESTREL
     Indication: Menopausal symptoms
     Route: 048
     Dates: start: 2006
  4. ESTROGENS [Suspect]
     Active Substance: ESTROGENS
     Indication: Product used for unknown indication
     Route: 048
  5. LEVONORGESTREL [Suspect]
     Active Substance: LEVONORGESTREL
     Indication: Product used for unknown indication
     Route: 048
  6. NORGESTREL [Suspect]
     Active Substance: NORGESTREL
     Indication: Product used for unknown indication
  7. NORGESTREL [Suspect]
     Active Substance: NORGESTREL
     Route: 048
  8. MELOXICAM [Concomitant]
     Active Substance: MELOXICAM
     Indication: Arthralgia
     Route: 048
     Dates: start: 20090225, end: 20090325

REACTIONS (5)
  - Depression [Recovered/Resolved]
  - Hot flush [Recovered/Resolved]
  - Depressed mood [Recovered/Resolved]
  - Menopausal symptoms [Recovered/Resolved]
  - Crying [Recovered/Resolved]

NARRATIVE: CASE EVENT DATE: 20090401
